FAERS Safety Report 10086047 (Version 2)
Quarter: 2014Q2

REPORT INFORMATION
  Report Type: Spontaneous
  Country: DK (occurrence: DK)
  Receive Date: 20140418
  Receipt Date: 20140528
  Transmission Date: 20141212
  Serious: Yes (Death, Other)
  Sender: FDA-Public Use
  Company Number: PHHY2014DK047155

PATIENT
  Sex: 0

DRUGS (1)
  1. LEPONEX [Suspect]
     Dosage: UNK

REACTIONS (4)
  - White blood cell count decreased [Fatal]
  - Fungal infection [Unknown]
  - Skin exfoliation [Unknown]
  - Chapped lips [Unknown]
